FAERS Safety Report 18005110 (Version 2)
Quarter: 2020Q3

REPORT INFORMATION
  Report Type: Report from Study
  Country: AU (occurrence: AU)
  Receive Date: 20200709
  Receipt Date: 20200818
  Transmission Date: 20201103
  Serious: Yes (Hospitalization)
  Sender: FDA-Public Use
  Company Number: AU-EXELIXIS-XL18420028258

PATIENT
  Age: 60 Year
  Sex: Male
  Weight: 71.15 kg

DRUGS (16)
  1. XL184 [Suspect]
     Active Substance: CABOZANTINIB
     Indication: HEPATOCELLULAR CARCINOMA
     Dosage: 40 MG, QD
     Route: 048
     Dates: start: 20191023
  2. XL184 [Suspect]
     Active Substance: CABOZANTINIB
     Dosage: 20 MG, QD
     Route: 048
     Dates: start: 20200406
  3. ATEZOLIZUMAB. [Suspect]
     Active Substance: ATEZOLIZUMAB
     Indication: HEPATOCELLULAR CARCINOMA
     Dosage: 1200 MG, Q3WEEKS
     Route: 042
     Dates: start: 20191023
  4. UREDERM [Concomitant]
  5. ELEUPHRAT [Concomitant]
     Active Substance: BETAMETHASONE DIPROPIONATE
  6. ATEZOLIZUMAB. [Suspect]
     Active Substance: ATEZOLIZUMAB
     Dosage: 1200 MG, Q3WEEKS
     Route: 042
     Dates: start: 20200406
  7. VERAPAMIL [Concomitant]
     Active Substance: VERAPAMIL HYDROCHLORIDE
  8. PRODEINE [Concomitant]
  9. CEPHALEXIN. [Concomitant]
     Active Substance: CEPHALEXIN
  10. ALLOPURINOL. [Concomitant]
     Active Substance: ALLOPURINOL
  11. BENZAC [Concomitant]
     Active Substance: SALICYLIC ACID
  12. GASTROSTOP [Concomitant]
  13. ROSUVASTATIN. [Concomitant]
     Active Substance: ROSUVASTATIN
  14. THIAMINE. [Concomitant]
     Active Substance: THIAMINE
  15. DOXYCYCLINE. [Concomitant]
     Active Substance: DOXYCYCLINE
  16. MAGMIN [Concomitant]
     Active Substance: MAGNESIUM ASPARTATE

REACTIONS (2)
  - Liver function test abnormal [Recovered/Resolved]
  - Hypotension [Recovered/Resolved]

NARRATIVE: CASE EVENT DATE: 20200316
